FAERS Safety Report 11308712 (Version 1)
Quarter: 2015Q3

REPORT INFORMATION
  Report Type: Spontaneous
  Country: CH (occurrence: CH)
  Receive Date: 20150724
  Receipt Date: 20150724
  Transmission Date: 20151125
  Serious: Yes (Hospitalization, Congenital Anomaly)
  Sender: FDA-Public Use
  Company Number: CH-TEVA-579688ISR

PATIENT
  Age: 0 Year
  Sex: Male
  Weight: 4 kg

DRUGS (6)
  1. TEMESTA [Suspect]
     Active Substance: LORAZEPAM
     Dosage: MOTHER^S DOSAGE: 1 MG X 1 PER DAY
     Route: 064
     Dates: start: 2013, end: 20140613
  2. DAFALGAN [Suspect]
     Active Substance: ACETAMINOPHEN
     Indication: MUSCULOSKELETAL PAIN
     Dosage: MOTHER^S DOSAGE AND ADMINISTRATION DATES ARE UNKNOWN
     Route: 064
     Dates: start: 2014
  3. CO- DAFALGAN [Suspect]
     Active Substance: ACETAMINOPHEN\CODEINE PHOSPHATE
     Indication: MUSCULOSKELETAL PAIN
     Dosage: MOTHER^S DOSAGE AND ADMINISTRATION DATES ARE UNKNOWN
     Route: 064
     Dates: start: 2014
  4. IRFEN [Suspect]
     Active Substance: IBUPROFEN
     Indication: MUSCULOSKELETAL PAIN
     Dosage: MOTHER^S TREATING DOSAGE AND ADMINISTRATION DATES ARE UNKNOWN
     Route: 064
     Dates: start: 2014, end: 201405
  5. ABILIFY [Suspect]
     Active Substance: ARIPIPRAZOLE
     Indication: PSYCHOTIC DISORDER
     Dosage: 5MG OD AND THEN 10MG OD (THE DATE THE DOSE WAS CHANGED IS UNKNOWN)
     Route: 064
     Dates: end: 20140613
  6. ZYPREXA [Suspect]
     Active Substance: OLANZAPINE
     Indication: PSYCHOTIC DISORDER
     Route: 064
     Dates: start: 201311, end: 20140315

REACTIONS (6)
  - Patent ductus arteriosus [Recovered/Resolved]
  - Neonatal tachypnoea [Recovered/Resolved]
  - Exposure during pregnancy [Recovered/Resolved]
  - Maternal drugs affecting foetus [None]
  - Neonatal respiratory distress syndrome [Recovered/Resolved]
  - Foetal exposure during pregnancy [Unknown]

NARRATIVE: CASE EVENT DATE: 20140315
